FAERS Safety Report 15238555 (Version 3)
Quarter: 2018Q3

REPORT INFORMATION
  Report Type: Report from Study
  Country: None (occurrence: AU)
  Receive Date: 20180803
  Receipt Date: 20180919
  Transmission Date: 20181010
  Serious: Yes (Hospitalization)
  Sender: FDA-Public Use
  Company Number: AU-ABBVIE-18P-008-2433970-00

PATIENT
  Age: 61 Year
  Sex: Female
  Weight: 57 kg

DRUGS (17)
  1. ORAL FLUIDS [Concomitant]
     Route: 048
     Dates: start: 20180723
  2. ORAL FLUIDS [Concomitant]
     Route: 048
     Dates: start: 20180709, end: 20180710
  3. VALTREX [Concomitant]
     Active Substance: VALACYCLOVIR HYDROCHLORIDE
     Indication: ANTIVIRAL PROPHYLAXIS
     Route: 048
     Dates: start: 201707
  4. ACLASTA [Concomitant]
     Active Substance: ZOLEDRONIC ACID
     Indication: OSTEOPOROSIS
     Route: 042
     Dates: start: 2015
  5. VENETOCLAX. [Suspect]
     Active Substance: VENETOCLAX
     Route: 048
     Dates: start: 20180716, end: 20180726
  6. ALLOPURINOL. [Concomitant]
     Active Substance: ALLOPURINOL
     Indication: PROPHYLAXIS
     Route: 048
     Dates: start: 20180629, end: 20180723
  7. CALTRATE WITH VITAMIN D [Concomitant]
     Active Substance: CALCIUM CARBONATE\CHOLECALCIFEROL
     Indication: OSTEOPOROSIS
     Dosage: ^400 IU^
     Route: 048
     Dates: start: 2015
  8. SOMAC CONTROL [Concomitant]
     Active Substance: PANTOPRAZOLE SODIUM
     Indication: GASTROOESOPHAGEAL REFLUX DISEASE
     Route: 048
     Dates: start: 20150910
  9. ORAL FLUIDS [Concomitant]
     Indication: PROPHYLAXIS
     Route: 048
     Dates: start: 20180702, end: 20180703
  10. FEMARA [Concomitant]
     Active Substance: LETROZOLE
     Indication: BREAST CANCER
     Route: 048
     Dates: start: 2013
  11. VENETOCLAX. [Suspect]
     Active Substance: VENETOCLAX
     Route: 048
     Dates: start: 20180910
  12. THYROXINE [Concomitant]
     Active Substance: LEVOTHYROXINE
     Indication: THYROID HORMONE REPLACEMENT THERAPY
     Route: 048
     Dates: start: 2004
  13. ORAL FLUIDS [Concomitant]
     Route: 048
     Dates: start: 20180716, end: 20180717
  14. FLAREX [Concomitant]
     Active Substance: FLUOROMETHOLONE ACETATE
     Indication: OPHTHALMIC HERPES ZOSTER
     Route: 047
     Dates: start: 201707
  15. LYRICA [Concomitant]
     Active Substance: PREGABALIN
     Indication: OPHTHALMIC HERPES ZOSTER
     Route: 048
     Dates: start: 201707
  16. VENETOCLAX. [Suspect]
     Active Substance: VENETOCLAX
     Route: 048
     Dates: start: 20180709, end: 20180715
  17. VENETOCLAX. [Suspect]
     Active Substance: VENETOCLAX
     Indication: CHRONIC LYMPHOCYTIC LEUKAEMIA
     Route: 048
     Dates: start: 20180702, end: 20180708

REACTIONS (2)
  - Rash erythematous [Recovered/Resolved]
  - Rash pruritic [Recovered/Resolved]

NARRATIVE: CASE EVENT DATE: 20180725
